FAERS Safety Report 15302499 (Version 1)
Quarter: 2018Q3

REPORT INFORMATION
  Report Type: Other
  Country: IT (occurrence: IT)
  Receive Date: 20180821
  Receipt Date: 20180821
  Transmission Date: 20181010
  Serious: Yes (Hospitalization, Other)
  Sender: FDA-Public Use
  Company Number: IT-APOPHARMA USA, INC.-2018AP019024

PATIENT
  Age: 80 Year
  Sex: Female
  Weight: 57 kg

DRUGS (3)
  1. OLMEGAN [Concomitant]
     Indication: HYPERTENSION
     Dosage: 1 DF, OTHER
     Route: 048
     Dates: start: 20160302, end: 20170717
  2. FERRIPROX [Suspect]
     Active Substance: DEFERIPRONE
     Indication: IRON OVERLOAD
     Dosage: 3000 MG, QD
     Route: 048
     Dates: start: 20180220, end: 20180419
  3. DIUREMID 10 MG COMPRESSE [Concomitant]
     Indication: CARDIAC FAILURE CONGESTIVE
     Dosage: 5 MG, OTHER
     Route: 048
     Dates: start: 20160302, end: 20180707

REACTIONS (1)
  - Agranulocytosis [Recovered/Resolved]

NARRATIVE: CASE EVENT DATE: 20180419
